FAERS Safety Report 11410170 (Version 2)
Quarter: 2015Q4

REPORT INFORMATION
  Report Type: Spontaneous
  Country: US (occurrence: US)
  Receive Date: 20150824
  Receipt Date: 20151116
  Transmission Date: 20160304
  Serious: Yes (Other)
  Sender: FDA-Public Use
  Company Number: US-BAYER-2015-400653

PATIENT
  Age: 49 Year
  Sex: Female

DRUGS (1)
  1. AVELOX [Suspect]
     Active Substance: MOXIFLOXACIN HYDROCHLORIDE
     Indication: SINUSITIS
     Dosage: UNK
     Route: 048
     Dates: start: 200807

REACTIONS (15)
  - Tenderness [None]
  - Pain in extremity [None]
  - Muscular weakness [None]
  - Memory impairment [None]
  - Arthralgia [None]
  - Insomnia [None]
  - Dysuria [None]
  - Impaired work ability [None]
  - Polyneuropathy [None]
  - Injury [None]
  - Neuropathy peripheral [None]
  - Emotional distress [None]
  - Fatigue [None]
  - Pain [None]
  - Tinnitus [None]

NARRATIVE: CASE EVENT DATE: 2008
